FAERS Safety Report 13872502 (Version 1)
Quarter: 2017Q3

REPORT INFORMATION
  Report Type: Report from Study
  Country: DE (occurrence: DE)
  Receive Date: 20170816
  Receipt Date: 20170816
  Transmission Date: 20171127
  Serious: Yes (Congenital Anomaly, Other)
  Sender: FDA-Public Use
  Company Number: DE-MYLANLABS-2017M1050196

PATIENT

DRUGS (6)
  1. DESMOPRESSIN [Concomitant]
     Active Substance: DESMOPRESSIN
     Indication: EMPTY SELLA SYNDROME
     Dosage: RECEIVED FROM 0-38+2 WEEK OF GESTATION
     Route: 064
  2. HYDROCORTISONE. [Concomitant]
     Active Substance: HYDROCORTISONE
     Indication: EMPTY SELLA SYNDROME
     Dosage: RECEIVED FROM 0-38+2 WEEK OF GESTATION
     Route: 064
  3. ESTRADIOL. [Concomitant]
     Active Substance: ESTRADIOL
     Indication: ABORTION SPONTANEOUS
     Dosage: RECEIVED FROM 0-24 WEEK OF GESTATION
     Route: 064
  4. PROGESTERONE. [Concomitant]
     Active Substance: PROGESTERONE
     Indication: ABORTION SPONTANEOUS
     Dosage: RECEIVED FROM 0-24 WEEK OF GESTATION
     Route: 064
  5. LEVOTHYROXINE SODIUM. [Concomitant]
     Active Substance: LEVOTHYROXINE SODIUM
     Indication: EMPTY SELLA SYNDROME
     Dosage: RECEIVED FROM 0-38+2 WEEK OF GESTATION
     Route: 064
  6. METHYLDOPA. [Suspect]
     Active Substance: METHYLDOPA
     Indication: HYPERTENSION
     Dosage: 375MG/DAY
     Route: 064

REACTIONS (2)
  - Foetal exposure during pregnancy [Unknown]
  - Hypospadias [Unknown]
